FAERS Safety Report 12833748 (Version 2)
Quarter: 2016Q4

REPORT INFORMATION
  Report Type: Spontaneous
  Country: CH (occurrence: ES)
  Receive Date: 20161010
  Receipt Date: 20161027
  Transmission Date: 20170207
  Serious: Yes (Hospitalization)
  Sender: FDA-Public Use
  Company Number: CH-LPDUSPRD-20160877

PATIENT
  Age: 27 Year
  Sex: Female

DRUGS (6)
  1. CEFAZOLIN [Concomitant]
     Active Substance: CEFAZOLIN
     Dosage: 3 GM ( 1 IN 1 D)
     Route: 040
     Dates: start: 20150316, end: 20150317
  2. VENOFER [Suspect]
     Active Substance: IRON SUCROSE
     Dosage: 100 MG (100 MG, 1 IN 1 D)
     Route: 042
     Dates: start: 20150317
  3. CLEXANE [Concomitant]
     Active Substance: ENOXAPARIN SODIUM
     Dosage: 40MG ( 1 IN 1 D)
     Route: 058
     Dates: start: 20150317
  4. PARACETAMOL [Concomitant]
     Active Substance: ACETAMINOPHEN
     Dosage: 3 GM (1 IN 1 D)
     Route: 042
     Dates: start: 20150316
  5. OMEPRAZOLE. [Concomitant]
     Active Substance: OMEPRAZOLE
     Dosage: 20 MG (1 IN 1 D)
     Route: 048
     Dates: start: 20160316
  6. METAMIZOLE [Concomitant]
     Active Substance: METAMIZOLE
     Dosage: 6 GM ( 1 IN 1 DAY)
     Route: 042
     Dates: start: 20150316

REACTIONS (1)
  - Hepatitis acute [Recovered/Resolved]

NARRATIVE: CASE EVENT DATE: 20150320
